FAERS Safety Report 7900887-1 (Version None)
Quarter: 2011Q4

REPORT INFORMATION
  Report Type: 
  Country: None (occurrence: None)
  Receive Date: 20111108
  Receipt Date: 20111027
  Transmission Date: 20120403
  Serious: Yes (Other)
  Sender: FDA-Public Use
  Company Number: HK-SANOFI-AVENTIS-2010SA059092

PATIENT
  Age: 83 Year
  Sex: Male

DRUGS (3)
  1. AMIODARONE HCL [Suspect]
     Route: 048
  2. AMIODARONE HCL [Suspect]
     Indication: ATRIAL FIBRILLATION
     Route: 042
  3. MULTAQ [Suspect]
     Indication: ATRIAL FIBRILLATION
     Route: 048

REACTIONS (4)
  - ORGANISING PNEUMONIA [None]
  - ACUTE RESPIRATORY FAILURE [None]
  - PULMONARY FIBROSIS [None]
  - DYSPNOEA [None]
